FAERS Safety Report 9151489 (Version 1)
Quarter: 2013Q1

REPORT INFORMATION
  Report Type: Spontaneous
  Country: SE (occurrence: SE)
  Receive Date: 20130308
  Receipt Date: 20130308
  Transmission Date: 20140127
  Serious: Yes (Life-Threatening, Other)
  Sender: FDA-Public Use
  Company Number: SE-TEVA-389180ISR

PATIENT
  Age: 70 Year
  Sex: Female

DRUGS (4)
  1. COPAXONE [Suspect]
     Dosage: 1 DOSAGE FORMS DAILY; 1 DFD
     Route: 058
     Dates: start: 20121116, end: 20121118
  2. BAKLOFEN [Suspect]
     Dosage: 15 MILLIGRAM DAILY;
     Route: 048
     Dates: start: 20121112, end: 20121118
  3. ALVEDON [Concomitant]
  4. TRADOLAN [Concomitant]

REACTIONS (3)
  - Pulmonary embolism [Recovered/Resolved]
  - Dilatation atrial [Unknown]
  - Local swelling [Unknown]
